FAERS Safety Report 10795481 (Version 1)
Quarter: 2015Q1

REPORT INFORMATION
  Report Type: Spontaneous
  Country: SK (occurrence: SK)
  Receive Date: 20150215
  Receipt Date: 20150215
  Transmission Date: 20150721
  Serious: Yes (Other)
  Sender: FDA-Public Use
  Company Number: SK-WATSON-2015-01614

PATIENT
  Age: 3 Year
  Sex: Male

DRUGS (2)
  1. VALPROIC ACID (UNKNOWN) [Suspect]
     Active Substance: VALPROIC ACID
     Indication: ANGELMAN^S SYNDROME
     Dosage: UNK
     Route: 065
  2. TOPIRAMATE (UNKNOWN) [Suspect]
     Active Substance: TOPIRAMATE
     Indication: ANGELMAN^S SYNDROME
     Dosage: UNK
     Route: 065

REACTIONS (5)
  - Abnormal behaviour [Unknown]
  - Lethargy [Unknown]
  - Inappropriate affect [Unknown]
  - Agitation [Unknown]
  - Sleep disorder [Unknown]
